FAERS Safety Report 19311913 (Version 5)
Quarter: 2022Q1

REPORT INFORMATION
  Report Type: Report from Study
  Country: CA (occurrence: CA)
  Receive Date: 20210527
  Receipt Date: 20220120
  Transmission Date: 20220423
  Serious: Yes (Hospitalization)
  Sender: FDA-Public Use
  Company Number: CA-JNJFOC-20210448808

PATIENT
  Age: 15 Year
  Sex: Female
  Weight: 75 kg

DRUGS (4)
  1. REMICADE [Suspect]
     Active Substance: INFLIXIMAB
     Indication: Juvenile idiopathic arthritis
     Dosage: ADDITIONAL DATE: 07/APR/2020, ON 25-FEB-2021, 22-APR-2021 AND 18-MAY-2021,  THE PATIENT RECEIVED INF
     Route: 042
     Dates: start: 20190523
  2. REMICADE [Suspect]
     Active Substance: INFLIXIMAB
     Indication: Juvenile idiopathic arthritis
     Dosage: ADDITIONAL DATE: 07/APR/2020, ON 25-FEB-2021, 22-APR-2021 AND 18-MAY-2021,  THE PATIENT RECEIVED INF
     Route: 042
  3. LEVOTHYROXINE [Concomitant]
     Active Substance: LEVOTHYROXINE
     Indication: Hypothyroidism
     Route: 065
     Dates: start: 20170605
  4. METHOTREXATE [Concomitant]
     Active Substance: METHOTREXATE
     Indication: Juvenile idiopathic arthritis
     Route: 065
     Dates: start: 20200802

REACTIONS (6)
  - Depression [Recovering/Resolving]
  - Anxiety [Recovering/Resolving]
  - Intentional self-injury [Recovering/Resolving]
  - Malaise [Unknown]
  - Weight increased [Unknown]
  - Rash [Recovered/Resolved]

NARRATIVE: CASE EVENT DATE: 20210318
